FAERS Safety Report 7892586-X (Version None)
Quarter: 2011Q4

REPORT INFORMATION
  Report Type: 
  Country: None (occurrence: None)
  Receive Date: 20111102
  Receipt Date: 20111026
  Transmission Date: 20120403
  Serious: Yes (Hospitalization)
  Sender: FDA-Public Use
  Company Number: 2011SP048544

PATIENT
  Age: 15 Year
  Sex: Female

DRUGS (2)
  1. PROPRANOLOL [Concomitant]
  2. CERAZETTE (DESOGESTREL /00754001/) [Suspect]
     Indication: CONTRACEPTION
     Dosage: 75 MCG;QD;
     Dates: start: 20110818

REACTIONS (9)
  - HORNER'S SYNDROME [None]
  - IRRITABILITY [None]
  - SENSORY DISTURBANCE [None]
  - PUPILS UNEQUAL [None]
  - HEADACHE [None]
  - MIOSIS [None]
  - VISUAL IMPAIRMENT [None]
  - SWELLING [None]
  - EYELID PTOSIS [None]
